FAERS Safety Report 6576623-0 (Version None)
Quarter: 2010Q1

REPORT INFORMATION
  Report Type: 
  Country: None (occurrence: None)
  Receive Date: 20100210
  Receipt Date: 20100203
  Transmission Date: 20100710
  Serious: Yes (Other)
  Sender: FDA-Public Use
  Company Number: DE-BRISTOL-MYERS SQUIBB COMPANY-14963060

PATIENT
  Sex: Female

DRUGS (2)
  1. HYDROXYUREA [Suspect]
     Indication: PLATELET COUNT INCREASED
     Dosage: 1 D.F:6 TABLETS/DAY REDUCED TO 2 TABLETS PER DAY
  2. XAGRID [Suspect]
     Indication: PLATELET COUNT INCREASED
     Dosage: 1 D.F:1 TABLET PER DAY

REACTIONS (3)
  - AMAUROSIS FUGAX [None]
  - DRUG INEFFECTIVE [None]
  - TRANSIENT ISCHAEMIC ATTACK [None]
